FAERS Safety Report 8800001 (Version 2)
Quarter: 2012Q4

REPORT INFORMATION
  Report Type: 
  Country: US (occurrence: US)
  Receive Date: 20120921
  Receipt Date: 20121008
  Transmission Date: 20130627
  Serious: No
  Sender: FDA-Public Use
  Company Number: PHEH2012US018317

PATIENT
  Age: 68 Year
  Sex: Female

DRUGS (4)
  1. TASIGNA [Suspect]
     Dosage: 600 mg, daily
     Route: 048
     Dates: start: 20120808
  2. BUPROPION [Concomitant]
     Indication: DEPRESSION
     Dosage: 150 mg, UNK
     Dates: start: 20120908, end: 20120917
  3. LIPITOR [Concomitant]
  4. CYMBALTA [Concomitant]
     Dates: start: 20120920

REACTIONS (2)
  - Depression [Recovered/Resolved]
  - Concomitant disease aggravated [Unknown]
